FAERS Safety Report 8556498-0 (Version None)
Quarter: 2012Q3

REPORT INFORMATION
  Report Type: 
  Country: None (occurrence: None)
  Receive Date: 20120801
  Receipt Date: 20120731
  Transmission Date: 20120928
  Serious: Yes (Hospitalization, Other)
  Sender: FDA-Public Use
  Company Number: PHFR2012IE001075

PATIENT
  Sex: Male

DRUGS (22)
  1. VALPROIC ACID [Concomitant]
     Dosage: 500MG MANE + 100MG NOCTE
  2. LACTULOSE [Concomitant]
     Dosage: 1 DF, BID
     Route: 048
  3. CLOZARIL [Suspect]
     Route: 048
     Dates: start: 20120420
  4. NEILMED [Concomitant]
     Dosage: 1 DF, BID
     Route: 048
  5. CLOZARIL [Suspect]
     Dosage: 325 MG, UNK (125 MG MANE AND 200 MG NOCTE)
     Route: 048
  6. ASPIRIN [Concomitant]
     Dosage: 75 MG, MANE
     Route: 048
  7. VALPROIC ACID [Concomitant]
     Dosage: 1000 MG, NOCTE
     Route: 048
  8. FYBOGEL ORANGE [Concomitant]
     Dosage: 1 SACHET BD PRN
     Route: 048
  9. PLAVIX [Concomitant]
     Dosage: 50 MG, UNK
  10. PLAVIX [Concomitant]
     Dosage: 75 MG, DAILY
     Route: 048
  11. CRESTOR [Concomitant]
     Dosage: 5 MG, NOCTE
     Route: 048
  12. MOVIPREP [Concomitant]
  13. CLARITHROMYCIN [Concomitant]
     Dosage: 500 MG, BID
     Route: 048
  14. KWELLS [Concomitant]
     Route: 048
  15. CLOZARIL [Suspect]
     Route: 048
     Dates: end: 20120417
  16. CLOZARIL [Suspect]
     Dosage: 550 MG (150 MG MANE, 50 MG AT 13:00 HRS AND 350 MG NOCTE))
     Route: 048
  17. VALPROIC ACID [Concomitant]
     Dosage: 1500 MG, DAILY (500 MG MANE AND 1000 MG NOCTE)
     Route: 048
  18. CLOZARIL [Suspect]
     Indication: SCHIZOPHRENIA
     Dosage: UNK UKN, UNK
     Route: 048
     Dates: start: 20050117
  19. METOPROLOL TARTRATE [Concomitant]
     Dosage: 50 MG, BID
     Route: 048
  20. HYOSCINE HYDROBROMIDE [Concomitant]
     Dosage: 300 UG, TID
  21. ACETAMINOPHEN [Concomitant]
     Dosage: 1 G, QDS
     Route: 048
  22. AMOXICILLIN AND CLAVULANATE POTASSIUM [Concomitant]
     Dosage: 625 MG, TID
     Route: 048

REACTIONS (10)
  - SYNCOPE [None]
  - PROTHROMBIN TIME PROLONGED [None]
  - FALL [None]
  - CONVULSION [None]
  - CHEST PAIN [None]
  - PLATELET COUNT DECREASED [None]
  - SINUS TACHYCARDIA [None]
  - ANTIPSYCHOTIC DRUG LEVEL ABOVE THERAPEUTIC [None]
  - PULMONARY VALVE INCOMPETENCE [None]
  - CARDIAC DISORDER [None]
